FAERS Safety Report 24383291 (Version 2)
Quarter: 2024Q4

REPORT INFORMATION
  Report Type: Spontaneous
  Country: CA (occurrence: CA)
  Receive Date: 20241001
  Receipt Date: 20241011
  Transmission Date: 20250115
  Serious: Yes (Other)
  Sender: BAYER
  Company Number: CA-BAYER-2024A139069

PATIENT
  Sex: Female

DRUGS (1)
  1. MIRENA [Suspect]
     Active Substance: LEVONORGESTREL
     Dosage: 20?G/DAY
     Route: 015
     Dates: start: 202104, end: 2024

REACTIONS (4)
  - Embedded device [Unknown]
  - Device breakage [None]
  - Pelvic pain [None]
  - Complication of device removal [None]

NARRATIVE: CASE EVENT DATE: 20240801
